FAERS Safety Report 20140789 (Version 1)
Quarter: 2021Q4

REPORT INFORMATION
  Report Type: Spontaneous
  Country: BR (occurrence: BR)
  Receive Date: 20211202
  Receipt Date: 20211202
  Transmission Date: 20220303
  Serious: Yes (Other)
  Sender: FDA-Public Use
  Company Number: BR-NOVARTISPH-NVSC2019BR004245

PATIENT
  Sex: Female
  Weight: 56 kg

DRUGS (6)
  1. TIMOLOL MALEATE\TRAVOPROST [Suspect]
     Active Substance: TIMOLOL MALEATE\TRAVOPROST
     Indication: Glaucoma
     Dosage: 1 DRP,  (MORE THAN 10 YEARS)
     Route: 047
  2. TIMOLOL MALEATE\TRAVOPROST [Suspect]
     Active Substance: TIMOLOL MALEATE\TRAVOPROST
     Dosage: UNK (STOP ONE YEAR AGO)
     Route: 065
  3. TIMOLOL MALEATE\TRAVOPROST [Suspect]
     Active Substance: TIMOLOL MALEATE\TRAVOPROST
     Dosage: 1 DRP, QD IN EACH EYE (AT NIGHT) (MORE THAN 10 YEARS AGO)
     Route: 047
  4. PURAN [Concomitant]
     Active Substance: LEVOTHYROXINE SODIUM
     Indication: Thyroid disorder
     Dosage: 75 MG, QD
     Route: 048
     Dates: start: 1998
  5. LISINOPRIL [Concomitant]
     Active Substance: LISINOPRIL
     Indication: Cardiac disorder
     Dosage: 5 MG, QD
     Route: 048
     Dates: start: 1998
  6. AMIODARONE [Concomitant]
     Active Substance: AMIODARONE
     Indication: Cardiac disorder
     Dosage: 200 MG, QD (SPLITS IN HALF OR BUYS THE 100MG TABLET)
     Route: 048
     Dates: start: 1998

REACTIONS (6)
  - Blindness [Not Recovered/Not Resolved]
  - Cataract [Unknown]
  - Refraction disorder [Unknown]
  - Cardiac disorder [Not Recovered/Not Resolved]
  - Intraocular pressure test abnormal [Not Recovered/Not Resolved]
  - Product availability issue [Unknown]
